FAERS Safety Report 4685498-6 (Version None)
Quarter: 2005Q2

REPORT INFORMATION
  Report Type: 
  Country: None (occurrence: None)
  Receive Date: 20050608
  Receipt Date: 20050523
  Transmission Date: 20051028
  Serious: Yes (Hospitalization, Disabling, Other)
  Sender: FDA-Public Use
  Company Number: PHRM2005FR01610

PATIENT
  Age: 76 Year
  Sex: Male
  Weight: 79 kg

DRUGS (3)
  1. ZOMETA [Suspect]
     Indication: LYMPHOMA
     Dosage: 4 MG, QMO
     Route: 042
     Dates: start: 20030301, end: 20041101
  2. CHOP [Suspect]
     Indication: LYMPHOMA
     Route: 042
     Dates: start: 20030301, end: 20030901
  3. MABTHERA [Suspect]
     Indication: LYMPHOMA
     Dosage: 375 MG DAILY
     Route: 042
     Dates: start: 20030301, end: 20041101

REACTIONS (10)
  - ALPHA HAEMOLYTIC STREPTOCOCCAL INFECTION [None]
  - ASEPTIC NECROSIS BONE [None]
  - BACTERIAL INFECTION [None]
  - IMPAIRED HEALING [None]
  - LACTOBACILLUS INFECTION [None]
  - OSTEITIS [None]
  - OSTEONECROSIS [None]
  - STAPHYLOCOCCAL INFECTION [None]
  - TOOTH EXTRACTION [None]
  - TOOTH INFECTION [None]
